FAERS Safety Report 4850861-7 (Version None)
Quarter: 2005Q4

REPORT INFORMATION
  Report Type: 
  Country: None (occurrence: None)
  Receive Date: 20051208
  Receipt Date: 20051125
  Transmission Date: 20060501
  Serious: Yes (Other)
  Sender: FDA-Public Use
  Company Number: 2005159675

PATIENT
  Sex: Female
  Weight: 18.1439 kg

DRUGS (1)
  1. BENYLIN (DEXTROMETHORPHAN) [Suspect]
     Indication: COUGH
     Dosage: TEASPOON, ORAL
     Route: 048
     Dates: start: 20040901, end: 20051102

REACTIONS (1)
  - DRUG HYPERSENSITIVITY [None]
